FAERS Safety Report 24366647 (Version 2)
Quarter: 2024Q4

REPORT INFORMATION
  Report Type: Spontaneous
  Country: FR (occurrence: FR)
  Receive Date: 20240926
  Receipt Date: 20241025
  Transmission Date: 20250115
  Serious: Yes (Other)
  Sender: MERCK
  Company Number: None

PATIENT
  Age: 38 Year
  Sex: Female
  Weight: 60 kg

DRUGS (3)
  1. KEYTRUDA [Suspect]
     Active Substance: PEMBROLIZUMAB
     Indication: Triple negative breast cancer
     Dosage: C1, 200 MILLIGRAM
     Route: 042
     Dates: start: 20240311
  2. CYCLOPHOSPHAMIDE [Suspect]
     Active Substance: CYCLOPHOSPHAMIDE
     Indication: Triple negative breast cancer
     Dosage: C1
     Route: 042
     Dates: start: 20240311
  3. DOXORUBICIN HYDROCHLORIDE [Suspect]
     Active Substance: DOXORUBICIN HYDROCHLORIDE
     Indication: Triple negative breast cancer
     Dosage: C1
     Route: 042
     Dates: start: 20240311

REACTIONS (3)
  - Condition aggravated [Recovering/Resolving]
  - Catheter site dehiscence [Recovering/Resolving]
  - Catheter site infection [Recovering/Resolving]

NARRATIVE: CASE EVENT DATE: 20240316
